FAERS Safety Report 14306825 (Version 1)
Quarter: 2017Q4

REPORT INFORMATION
  Report Type: Spontaneous
  Country: US (occurrence: US)
  Receive Date: 20171220
  Receipt Date: 20171220
  Transmission Date: 20180321
  Serious: Yes (Hospitalization, Other)
  Sender: FDA-Public Use
  Company Number: US-ZYDUS-018384

PATIENT
  Age: 46 Year
  Sex: Female

DRUGS (2)
  1. PROMETHAZINE [Suspect]
     Active Substance: PROMETHAZINE\PROMETHAZINE HYDROCHLORIDE
     Indication: NAUSEA
     Route: 042
  2. HEPARIN [Interacting]
     Active Substance: HEPARIN SODIUM
     Indication: PRODUCT USED FOR UNKNOWN INDICATION
     Route: 042

REACTIONS (15)
  - Pulmonary mass [Recovering/Resolving]
  - Drug therapeutic incompatibility [Unknown]
  - Cardiomegaly [Unknown]
  - Cough [Recovered/Resolved]
  - Liver function test increased [Recovered/Resolved]
  - Pneumonitis [Recovering/Resolving]
  - Lung abscess [Unknown]
  - Abdominal pain [Recovered/Resolved]
  - Dyspnoea exertional [Recovered/Resolved]
  - Lymphadenopathy [Recovered/Resolved]
  - Pulmonary embolism [Recovered/Resolved]
  - C-reactive protein increased [Recovered/Resolved]
  - Pulmonary hypertension [Recovered/Resolved]
  - Restrictive pulmonary disease [Recovering/Resolving]
  - Drug administration error [Unknown]
